FAERS Safety Report 20584857 (Version 3)
Quarter: 2022Q2

REPORT INFORMATION
  Report Type: Report from Study
  Country: US (occurrence: US)
  Receive Date: 20220311
  Receipt Date: 20220428
  Transmission Date: 20220721
  Serious: No
  Sender: FDA-Public Use
  Company Number: US-NOVARTISTESTPH-NVSC2022US056657

PATIENT
  Sex: Male

DRUGS (1)
  1. ENTRESTO [Suspect]
     Active Substance: SACUBITRIL\VALSARTAN
     Indication: Product used for unknown indication
     Dosage: 1 DOSAGE FORM, BID (49/51MG)
     Route: 048
     Dates: start: 202203

REACTIONS (8)
  - Dyspepsia [Unknown]
  - Blood glucose decreased [Unknown]
  - Nasopharyngitis [Unknown]
  - Chest pain [Unknown]
  - Ejection fraction decreased [Unknown]
  - Blood pressure decreased [Unknown]
  - Cough [Unknown]
  - Product dose omission in error [Unknown]
